FAERS Safety Report 6627918-3 (Version None)
Quarter: 2010Q1

REPORT INFORMATION
  Report Type: 
  Country: None (occurrence: None)
  Receive Date: 20100311
  Receipt Date: 20090318
  Transmission Date: 20100710
  Serious: No
  Sender: FDA-Public Use
  Company Number: A0773952A

PATIENT
  Age: 31 Year
  Sex: Female

DRUGS (2)
  1. NICORETTE [Suspect]
     Dates: start: 20090316
  2. NICODERM CQ [Suspect]

REACTIONS (5)
  - ABNORMAL DREAMS [None]
  - DRY THROAT [None]
  - FEELING ABNORMAL [None]
  - PARAESTHESIA ORAL [None]
  - URTICARIA [None]
